FAERS Safety Report 5413190-9 (Version None)
Quarter: 2007Q3

REPORT INFORMATION
  Report Type: 
  Country: None (occurrence: None)
  Receive Date: 20070814
  Receipt Date: 20070807
  Transmission Date: 20080115
  Serious: Yes (Hospitalization)
  Sender: FDA-Public Use
  Company Number: PHBS2007JP08403

PATIENT
  Age: 33 Year
  Sex: Female
  Weight: 45 kg

DRUGS (19)
  1. DIHYDERGOT [Suspect]
     Indication: MIGRAINE
     Dosage: 3 MG/DAY
     Route: 048
     Dates: start: 19960101, end: 19970701
  2. CLEAMINE [Suspect]
     Indication: MIGRAINE
     Dosage: 10 TABLETS PER MONTH
     Route: 048
     Dates: start: 19960101, end: 20030116
  3. VOLTAREN [Suspect]
     Indication: DYSMENORRHOEA
     Dosage: 10 TABLETS PER MONTH
     Route: 054
     Dates: start: 19971201
  4. BRUFEN [Suspect]
     Indication: HEADACHE
     Route: 048
     Dates: start: 19980402, end: 19990121
  5. SELBEX [Concomitant]
     Indication: ABDOMINAL PAIN UPPER
     Dosage: 3 DF, UNK
     Route: 048
     Dates: start: 19960101, end: 20000608
  6. MYONAL [Concomitant]
     Indication: MUSCULOSKELETAL STIFFNESS
     Dosage: 3 DF, UNK
     Route: 048
     Dates: start: 19960101
  7. CERCINE [Concomitant]
     Indication: INSOMNIA
     Dosage: 1 DF, UNK
     Route: 048
     Dates: start: 19960101, end: 19970626
  8. HALCION [Concomitant]
     Indication: INSOMNIA
     Dosage: 1 DF, UNK
     Route: 048
     Dates: start: 19960101, end: 20020613
  9. ZESULAN [Concomitant]
     Indication: RHINITIS
     Dosage: 2 DF, UNK
     Route: 048
     Dates: start: 19960101, end: 20040916
  10. NAUZELIN [Concomitant]
     Indication: NAUSEA
     Route: 048
     Dates: start: 19960101, end: 20000719
  11. ANAFRANIL [Concomitant]
     Indication: DEPRESSION
     Dosage: 3 DF, UNK
     Route: 048
     Dates: start: 19971027, end: 20021211
  12. RESTAS [Concomitant]
     Indication: ANXIETY
     Dosage: 1 DF, UNK
     Route: 048
     Dates: start: 19980223, end: 19980709
  13. TRYPTANOL [Concomitant]
     Indication: DEPRESSION
     Dosage: 2 DF, UNK
     Route: 048
     Dates: start: 19980402, end: 19990127
  14. LUDIOMIL [Concomitant]
     Indication: DEPRESSION
     Dosage: 2 DF, UNK
     Route: 048
     Dates: start: 19980202, end: 19980723
  15. LEXOTAN [Concomitant]
     Indication: ANXIETY
     Dosage: 2 DF, UNK
     Route: 048
     Dates: start: 19980119, end: 19981125
  16. MAGNESIUM OXIDE [Concomitant]
     Indication: CONSTIPATION
     Dosage: 1.5 MG, UNK
     Route: 048
     Dates: start: 19971027
  17. CEREKINON [Concomitant]
     Indication: ABDOMINAL DISTENSION
     Dosage: 3 DF, UNK
     Route: 048
     Dates: start: 19980209, end: 20020529
  18. GASCON [Concomitant]
     Indication: ABDOMINAL DISTENSION
     Route: 048
     Dates: start: 19970804
  19. LORAZEPAM [Concomitant]
     Indication: ANXIETY
     Route: 048
     Dates: start: 19980119, end: 20040114

REACTIONS (4)
  - CONDITION AGGRAVATED [None]
  - DRUG ADMINISTRATION ERROR [None]
  - DRUG WITHDRAWAL SYNDROME [None]
  - HEADACHE [None]
